FAERS Safety Report 7389918-8 (Version None)
Quarter: 2011Q2

REPORT INFORMATION
  Report Type: 
  Country: None (occurrence: None)
  Receive Date: 20110401
  Receipt Date: 20110328
  Transmission Date: 20111010
  Serious: Yes (Death, Hospitalization, Other)
  Sender: FDA-Public Use
  Company Number: FR-ASTRAZENECA-2011SE17772

PATIENT
  Age: 84 Year
  Sex: Female

DRUGS (14)
  1. PRAVASTATIN ARROW [Concomitant]
     Route: 048
     Dates: start: 20091124, end: 20110205
  2. NEXIUM [Interacting]
     Route: 048
     Dates: start: 20091124, end: 20110205
  3. CARDENSIEL [Interacting]
     Route: 048
     Dates: start: 20091201, end: 20110205
  4. TRANDOLAPRIL [Suspect]
     Route: 048
     Dates: start: 20091124, end: 20110205
  5. KARDEGIC [Concomitant]
     Dates: start: 20100701, end: 20110205
  6. LEXOMIL [Concomitant]
     Dates: start: 20100701, end: 20110205
  7. PROCORALAN [Interacting]
     Route: 048
     Dates: start: 20091201, end: 20100629
  8. PROCORALAN [Interacting]
     Route: 048
     Dates: start: 20100629, end: 20110205
  9. LANTUS [Concomitant]
     Dates: start: 20100701, end: 20110205
  10. PROCORALAN [Interacting]
     Route: 048
     Dates: start: 20091124, end: 20091201
  11. ATHYMIL [Concomitant]
     Dates: start: 20100701, end: 20110205
  12. HUMALOG PEN [Concomitant]
     Dosage: AS PER PROTOCOL
     Dates: start: 20100701, end: 20110205
  13. CARDENSIEL [Interacting]
     Route: 048
     Dates: start: 20091124, end: 20091201
  14. LASIX [Concomitant]
     Dates: start: 20100701, end: 20110205

REACTIONS (4)
  - DRUG INTERACTION [None]
  - RENAL FAILURE [None]
  - PARALYSIS [None]
  - OVERDOSE [None]
